FAERS Safety Report 12283426 (Version 2)
Quarter: 2016Q2

REPORT INFORMATION
  Report Type: Report from Study
  Country: US (occurrence: US)
  Receive Date: 20160419
  Receipt Date: 20160510
  Transmission Date: 20160815
  Serious: Yes (Death, Hospitalization)
  Sender: FDA-Public Use
  Company Number: US-ACTELION-A-US2013-81893

PATIENT
  Age: 58 Year
  Sex: Male

DRUGS (4)
  1. TYVASO [Concomitant]
     Active Substance: TREPROSTINIL
  2. VELETRI [Suspect]
     Active Substance: EPOPROSTENOL
     Indication: PULMONARY ARTERIAL HYPERTENSION
     Dosage: 6 NG/KG, PER MIN
     Route: 042
     Dates: start: 20120913, end: 20160405
  3. LETAIRIS [Concomitant]
     Active Substance: AMBRISENTAN
  4. ADCIRCA [Concomitant]
     Active Substance: TADALAFIL

REACTIONS (14)
  - Pain in jaw [Unknown]
  - Catheter site erythema [Unknown]
  - Fluid retention [Unknown]
  - Headache [Unknown]
  - Arthralgia [Unknown]
  - Ascites [Unknown]
  - Fluid overload [Unknown]
  - Decreased appetite [Unknown]
  - Dyspnoea [Unknown]
  - Oedema peripheral [Unknown]
  - Fatigue [Unknown]
  - Cardiac failure [Fatal]
  - Cyanosis [Unknown]
  - Rash [Unknown]

NARRATIVE: CASE EVENT DATE: 20130405
